FAERS Safety Report 8582514-6 (Version None)
Quarter: 2012Q3

REPORT INFORMATION
  Report Type: 
  Country: None (occurrence: None)
  Receive Date: 20120809
  Receipt Date: 20120803
  Transmission Date: 20120928
  Serious: Yes (Hospitalization, Other)
  Sender: FDA-Public Use
  Company Number: US-ABBOTT-12P-163-0947566-00

PATIENT
  Sex: Female
  Weight: 72.64 kg

DRUGS (4)
  1. ADVIL [Suspect]
     Indication: ENDOMETRIOSIS
  2. ADDERALL 5 [Concomitant]
     Indication: PRODUCT USED FOR UNKNOWN INDICATION
  3. EFFEXOR [Concomitant]
     Indication: PRODUCT USED FOR UNKNOWN INDICATION
  4. LUPRON DEPOT [Suspect]
     Indication: ENDOMETRIOSIS
     Dates: start: 20120515

REACTIONS (11)
  - ABDOMINAL PAIN UPPER [None]
  - HAEMATEMESIS [None]
  - PANCREATITIS [None]
  - SHOCK HAEMORRHAGIC [None]
  - THROMBOSIS [None]
  - SYNCOPE [None]
  - HAEMATOCHEZIA [None]
  - GASTRIC ULCER [None]
  - HYPOAESTHESIA [None]
  - ASTHENIA [None]
  - HEAD INJURY [None]
